FAERS Safety Report 17913260 (Version 4)
Quarter: 2020Q4

REPORT INFORMATION
  Report Type: Spontaneous
  Country: US (occurrence: US)
  Receive Date: 20200618
  Receipt Date: 20201030
  Transmission Date: 20210113
  Serious: Yes (Life-Threatening, Disabling, Other)
  Sender: FDA-Public Use
  Company Number: US-ASTRAZENECA-2020SE75572

PATIENT
  Age: 66 Year
  Sex: Female
  Weight: 90.7 kg

DRUGS (11)
  1. PHENTERMINE. [Concomitant]
     Active Substance: PHENTERMINE
  2. MULTI VIT [Concomitant]
     Active Substance: VITAMINS
  3. BABY ASPIRIN [Concomitant]
     Active Substance: ASPIRIN
  4. FARXIGA [Suspect]
     Active Substance: DAPAGLIFLOZIN PROPANEDIOL
     Indication: DIABETES MELLITUS
     Route: 048
     Dates: start: 2017
  5. HYDROCHOLROTHIAZIDE [Concomitant]
  6. LISINOPRIL. [Concomitant]
     Active Substance: LISINOPRIL
  7. FARXIGA [Suspect]
     Active Substance: DAPAGLIFLOZIN PROPANEDIOL
     Indication: DIABETES MELLITUS
     Route: 048
     Dates: start: 20200105, end: 20200508
  8. EZETIMIVE [Concomitant]
  9. AMOXYCILLIN [Concomitant]
     Active Substance: AMOXICILLIN
     Dosage: 500.0MG UNKNOWN
  10. METOPROLOL. [Suspect]
     Active Substance: METOPROLOL
     Route: 065
  11. CALCIUM WITH VIT D [Concomitant]

REACTIONS (22)
  - Sepsis [Unknown]
  - Diarrhoea [Recovered/Resolved]
  - Urinary tract infection [Recovered/Resolved]
  - Fungal infection [Recovered/Resolved]
  - Infection [Recovered/Resolved]
  - Back pain [Not Recovered/Not Resolved]
  - Glucose urine present [Recovered/Resolved]
  - Abdominal pain upper [Unknown]
  - Glomerular filtration rate decreased [Unknown]
  - Thyroid disorder [Unknown]
  - Memory impairment [Unknown]
  - Blood glucose increased [Recovered/Resolved]
  - Pneumonitis [Unknown]
  - Pancreatitis acute [Unknown]
  - Renal failure [Recovered/Resolved]
  - Nausea [Unknown]
  - Thyroid cyst [Unknown]
  - Streptococcal urinary tract infection [Unknown]
  - Dyspnoea [Unknown]
  - Thyroid neoplasm [Unknown]
  - Diabetic ketoacidosis [Unknown]
  - Bone disorder [Unknown]

NARRATIVE: CASE EVENT DATE: 202002
